FAERS Safety Report 10498689 (Version 3)
Quarter: 2014Q4

REPORT INFORMATION
  Report Type: Spontaneous
  Country: US (occurrence: US)
  Receive Date: 20141006
  Receipt Date: 20141113
  Transmission Date: 20150528
  Serious: Yes (Hospitalization, Other)
  Sender: FDA-Public Use
  Company Number: US-BAYER-2014-147448

PATIENT
  Age: 23 Year
  Sex: Female
  Weight: 68.27 kg

DRUGS (1)
  1. MIRENA [Suspect]
     Active Substance: LEVONORGESTREL
     Indication: CONTRACEPTION
     Dosage: 20 MCG/24HR, CONT
     Route: 015
     Dates: start: 20061207, end: 20070905

REACTIONS (15)
  - Pain [None]
  - Uterine perforation [None]
  - Depression [None]
  - Drug ineffective [None]
  - Device dislocation [None]
  - Anxiety [None]
  - Abdominal pain lower [None]
  - Vaginal haemorrhage [None]
  - Emotional distress [None]
  - Transfusion [None]
  - Pregnancy with contraceptive device [None]
  - Device difficult to use [None]
  - Procedural haemorrhage [None]
  - Abortion spontaneous [None]
  - Injury [None]

NARRATIVE: CASE EVENT DATE: 200708
